FAERS Safety Report 5275857-5 (Version None)
Quarter: 2007Q1

REPORT INFORMATION
  Report Type: 
  Country: None (occurrence: None)
  Receive Date: 20070326
  Receipt Date: 20070315
  Transmission Date: 20070707
  Serious: Yes (Hospitalization)
  Sender: FDA-Public Use
  Company Number: US-JNJFOC-20070303705

PATIENT
  Sex: Female

DRUGS (10)
  1. INFLIXIMAB [Suspect]
     Indication: RHEUMATOID ARTHRITIS
     Route: 042
  2. PREDNISONE [Concomitant]
  3. ACTONEL [Concomitant]
  4. NEXIUM [Concomitant]
  5. PLAQUENIL [Concomitant]
  6. PERCOCET [Concomitant]
     Dosage: 10MG 4 TABS DAILY
  7. POTASSIUM ACETATE [Concomitant]
  8. CALCIUM [Concomitant]
  9. FOLIC ACID [Concomitant]
  10. VITAMIN B-12 [Concomitant]

REACTIONS (2)
  - PNEUMOCEPHALUS [None]
  - SYNCOPE [None]
